FAERS Safety Report 9626852 (Version 1)
Quarter: 2013Q4

REPORT INFORMATION
  Report Type: Spontaneous
  Country: US (occurrence: US)
  Receive Date: 20131016
  Receipt Date: 20131016
  Transmission Date: 20140711
  Serious: Yes (Other)
  Sender: FDA-Public Use
  Company Number: US-TEVA-438207USA

PATIENT
  Age: 73 Year
  Sex: Female

DRUGS (7)
  1. TREANDA [Suspect]
     Indication: B-CELL LYMPHOMA
     Route: 042
  2. TREANDA [Suspect]
     Route: 042
  3. TREANDA [Suspect]
     Route: 042
  4. TREANDA [Suspect]
     Route: 042
  5. TREANDA [Suspect]
     Route: 042
  6. TREANDA [Suspect]
     Route: 042
  7. RITUXAN [Concomitant]
     Indication: B-CELL LYMPHOMA

REACTIONS (1)
  - Neutropenia [Not Recovered/Not Resolved]
